FAERS Safety Report 5346010-1 (Version None)
Quarter: 2007Q2

REPORT INFORMATION
  Report Type: 
  Country: None (occurrence: None)
  Receive Date: 20070605
  Receipt Date: 20070531
  Transmission Date: 20071010
  Serious: Yes (Life-Threatening, Hospitalization, Other)
  Sender: FDA-Public Use
  Company Number: DK-ELI_LILLY_AND_COMPANY-DK200705002986

PATIENT
  Age: 40 Year
  Sex: Female
  Weight: 99 kg

DRUGS (8)
  1. PEMETREXED [Suspect]
     Indication: NON-SMALL CELL LUNG CANCER
     Dosage: 1015 MG, UNKNOWN
     Route: 042
     Dates: start: 20070124, end: 20070308
  2. PEMETREXED [Suspect]
     Dosage: 507.5 MG, UNKNOWN
     Dates: start: 20070412, end: 20070502
  3. THERAPEUTIC RADIOPHARMACEUTICALS [Concomitant]
  4. ANTIBIOTICS [Concomitant]
     Indication: LEUKOPENIA
     Route: 042
  5. FOLIC ACID [Concomitant]
     Indication: SUPPLEMENTATION THERAPY
     Dosage: 0.4 MG, DAILY (1/D)
     Dates: start: 20070123, end: 20070506
  6. EMPERAL [Concomitant]
     Dosage: 0-60 MG, AS NEEDED
  7. CISPLATIN [Concomitant]
     Indication: NON-SMALL CELL LUNG CANCER
     Dosage: UNK, ON DAY 1 AND 8 OF 21 DAY CYCLE
     Dates: start: 20060829
  8. VITAMIN B-12 [Concomitant]
     Indication: SUPPLEMENTATION THERAPY

REACTIONS (3)
  - BLOOD CREATININE INCREASED [None]
  - RENAL DISORDER [None]
  - THROMBOCYTOPENIA [None]
